FAERS Safety Report 20389615 (Version 1)
Quarter: 2022Q1

REPORT INFORMATION
  Report Type: Other
  Country: CA (occurrence: CA)
  Receive Date: 20220128
  Receipt Date: 20220128
  Transmission Date: 20220424
  Serious: Yes (Life-Threatening, Other)
  Sender: FDA-Public Use
  Company Number: CA-CELLTRION INC.-2022CA000888

PATIENT

DRUGS (3)
  1. RITUXIMAB [Suspect]
     Active Substance: RITUXIMAB
     Indication: Granulomatosis with polyangiitis
     Dosage: 800 MILLIGRAM, 1 EVERY 1 WEEK
     Route: 042
  2. CANDESARTAN [Concomitant]
     Active Substance: CANDESARTAN
  3. PREDNISONE [Concomitant]
     Active Substance: PREDNISONE

REACTIONS (6)
  - Renal disorder [Unknown]
  - Lung disorder [Unknown]
  - Dyspnoea [Unknown]
  - Off label use [Unknown]
  - Overdose [Unknown]
  - Off label use [Unknown]
